FAERS Safety Report 21100298 (Version 1)
Quarter: 2022Q3

REPORT INFORMATION
  Report Type: Spontaneous
  Country: IT (occurrence: IT)
  Receive Date: 20220719
  Receipt Date: 20220719
  Transmission Date: 20221027
  Serious: Yes (Other)
  Sender: FDA-Public Use
  Company Number: IT-INSUD PHARMA-2207IT02787

PATIENT

DRUGS (2)
  1. TESTOSTERONE [Suspect]
     Active Substance: TESTOSTERONE
     Indication: Muscle building therapy
     Dosage: UNK
     Route: 065
  2. UNSPECIFIED INGREDIENT [Suspect]
     Active Substance: UNSPECIFIED INGREDIENT
     Indication: Muscle building therapy

REACTIONS (13)
  - Acute kidney injury [Unknown]
  - IgA nephropathy [Unknown]
  - Glomerulosclerosis [Unknown]
  - Nephroangiosclerosis [Unknown]
  - Proteinuria [Unknown]
  - Blood creatinine increased [Unknown]
  - Hypertension [Unknown]
  - Vascular wall hypertrophy [Unknown]
  - Ventricular hypertrophy [Unknown]
  - Retinopathy [Unknown]
  - Visual field defect [Unknown]
  - Hypercholesterolaemia [Unknown]
  - Drug abuse [Unknown]
